FAERS Safety Report 5131454-3 (Version None)
Quarter: 2006Q4

REPORT INFORMATION
  Report Type: 
  Country: None (occurrence: None)
  Receive Date: 20061020
  Receipt Date: 20060901
  Transmission Date: 20070319
  Serious: Yes (Hospitalization)
  Sender: FDA-Public Use
  Company Number: PHNU2006DE03096

PATIENT
  Sex: Female

DRUGS (11)
  1. SANDIMMUNE [Suspect]
     Indication: HEART TRANSPLANT
     Dosage: 50 MG, BID
     Route: 048
  2. CERTICAN [Concomitant]
     Indication: HEART TRANSPLANT
     Dosage: 0.5 MG, BID
     Route: 048
  3. PLAVIX [Concomitant]
     Dosage: 75 MG, QD
  4. DECORTIN [Concomitant]
     Dosage: 1 DF, QD
  5. DILZEM [Concomitant]
     Dosage: 90 MG, BID
  6. XANEF [Concomitant]
  7. LOCOL [Concomitant]
  8. ALLOPURINOL [Concomitant]
  9. ENAHEXAL [Concomitant]
     Dosage: 10 MG, BID
  10. PRAVASTATIN [Concomitant]
     Dosage: 10 MG, QD
  11. FOLIC ACID [Concomitant]
     Dosage: 5 MG, QD

REACTIONS (5)
  - ANGIOPATHY [None]
  - BLOOD CREATININE INCREASED [None]
  - BLOOD UREA INCREASED [None]
  - PARAESTHESIA [None]
  - STENT PLACEMENT [None]
